FAERS Safety Report 12127121 (Version 1)
Quarter: 2016Q1

REPORT INFORMATION
  Report Type: Spontaneous
  Country: DE (occurrence: DE)
  Receive Date: 20160229
  Receipt Date: 20160229
  Transmission Date: 20160526
  Serious: Yes (Hospitalization)
  Sender: FDA-Public Use
  Company Number: DE-009507513-1602DEU011183

PATIENT
  Sex: Female

DRUGS (1)
  1. ZERBAXA [Suspect]
     Active Substance: CEFTOLOZANE SULFATE\TAZOBACTAM SODIUM
     Indication: INFECTION
     Dosage: UNK
     Dates: start: 20160219, end: 201602

REACTIONS (2)
  - Dermatitis allergic [Recovered/Resolved]
  - Arrhythmia [Recovered/Resolved]

NARRATIVE: CASE EVENT DATE: 201602
